FAERS Safety Report 6297191-7 (Version None)
Quarter: 2009Q3

REPORT INFORMATION
  Report Type: 
  Country: None (occurrence: None)
  Receive Date: 20090805
  Receipt Date: 20090729
  Transmission Date: 20100115
  Serious: Yes (Hospitalization, Other)
  Sender: FDA-Public Use
  Company Number: DE-BAXTER-2008BH001413

PATIENT
  Age: 56 Year
  Sex: Male
  Weight: 82 kg

DRUGS (5)
  1. ADVATE [Suspect]
     Indication: RETROPERITONEAL HAEMORRHAGE
     Dosage: DOSE UNIT:UNKNOWN
     Route: 065
     Dates: start: 20080112
  2. VALSARTAN [Concomitant]
  3. BISOPROLOL [Concomitant]
  4. AMLODIPINE [Concomitant]
  5. BISOPROLOL FUMARATE [Concomitant]

REACTIONS (2)
  - FACTOR VIII INHIBITION [None]
  - TUBULOINTERSTITIAL NEPHRITIS [None]
